FAERS Safety Report 18346577 (Version 6)
Quarter: 2025Q3

REPORT INFORMATION
  Report Type: Spontaneous
  Country: EU (occurrence: EU)
  Receive Date: 20201006
  Receipt Date: 20250926
  Transmission Date: 20251020
  Serious: Yes (Life-Threatening, Hospitalization, Disabling, Other)
  Sender: AUROBINDO
  Company Number: EU-PFIZER INC-2020267892

PATIENT
  Age: 61 Year
  Sex: Male

DRUGS (12)
  1. PREDNISONE [Suspect]
     Active Substance: PREDNISONE
     Indication: Orbital myositis
     Route: 048
  2. PREDNISONE [Suspect]
     Active Substance: PREDNISONE
     Indication: Mass
     Dosage: 20 MILLIGRAM, ONCE A DAY
     Route: 048
     Dates: start: 201601, end: 201607
  3. PREDNISONE [Suspect]
     Active Substance: PREDNISONE
     Dosage: 70 MILLIGRAM, ONCE A DAY
     Route: 048
     Dates: start: 201601, end: 201607
  4. VORICONAZOLE [Suspect]
     Active Substance: VORICONAZOLE
     Indication: Aspergillus infection
     Dosage: 400 MILLIGRAM/KILOGRAM, ONCE A DAY
     Route: 048
  5. VORICONAZOLE [Suspect]
     Active Substance: VORICONAZOLE
     Dosage: 400 MILLIGRAM, ONCE A DAY
     Route: 048
     Dates: start: 201608, end: 201610
  6. AMBISOME [Suspect]
     Active Substance: AMPHOTERICIN B
     Indication: Evidence based treatment
     Dosage: 3 MILLIGRAM/KILOGRAM, ONCE A DAY
     Route: 065
     Dates: start: 2016
  7. AMBISOME [Suspect]
     Active Substance: AMPHOTERICIN B
     Dosage: 5 MILLIGRAM/KILOGRAM, ONCE A DAY
     Route: 065
     Dates: start: 2016
  8. METHYLPREDNISOLONE [Suspect]
     Active Substance: METHYLPREDNISOLONE
     Indication: Orbital myositis
     Dosage: 1000 MILLIGRAM, ONCE A DAY 5 BOLUS OF 3 DAYS
     Route: 065
     Dates: start: 201601, end: 201607
  9. METHYLPREDNISOLONE [Suspect]
     Active Substance: METHYLPREDNISOLONE
     Indication: Mass
     Dosage: 750 MILLIGRAM, ONCE A DAY
     Route: 065
     Dates: start: 201601, end: 201607
  10. VORICONAZOLE [Suspect]
     Active Substance: VORICONAZOLE
     Indication: Aspergillus infection
     Route: 065
     Dates: start: 2016, end: 2017
  11. VORICONAZOLE [Suspect]
     Active Substance: VORICONAZOLE
     Dosage: 8 MILLIGRAM/KILOGRAM, ONCE A DAY
     Route: 042
     Dates: start: 201607, end: 201607
  12. VORICONAZOLE [Suspect]
     Active Substance: VORICONAZOLE
     Dosage: 12 MILLIGRAM/KILOGRAM, ONCE A DAY
     Route: 042
     Dates: start: 201607, end: 201607

REACTIONS (11)
  - Cranial nerve disorder [Recovered/Resolved]
  - Cerebral aspergillosis [Recovered/Resolved]
  - Aspergillus infection [Recovering/Resolving]
  - Condition aggravated [Recovering/Resolving]
  - Orbital myositis [Not Recovered/Not Resolved]
  - Blindness [Not Recovered/Not Resolved]
  - Blindness unilateral [Not Recovered/Not Resolved]
  - Osteolysis [Recovered/Resolved]
  - Paraesthesia [Unknown]
  - Drug ineffective [Recovered/Resolved]
  - Nephropathy toxic [Unknown]

NARRATIVE: CASE EVENT DATE: 20160701
